FAERS Safety Report 8509782-0 (Version None)
Quarter: 2012Q3

REPORT INFORMATION
  Report Type: 
  Country: None (occurrence: None)
  Receive Date: 20120713
  Receipt Date: 20120703
  Transmission Date: 20120928
  Serious: No
  Sender: FDA-Public Use
  Company Number: US-009507513-1207USA000855

PATIENT

DRUGS (1)
  1. NEXPLANON [Suspect]
     Indication: CONTRACEPTION
     Dosage: UNK
     Dates: start: 20120621

REACTIONS (4)
  - IMPLANT SITE PRURITUS [None]
  - IMPLANT SITE ERYTHEMA [None]
  - IMPLANT SITE RASH [None]
  - IMPLANT SITE MASS [None]
